FAERS Safety Report 21323382 (Version 3)
Quarter: 2022Q4

REPORT INFORMATION
  Report Type: Report from Study
  Country: IE (occurrence: IE)
  Receive Date: 20220912
  Receipt Date: 20221005
  Transmission Date: 20230113
  Serious: Yes (Hospitalization)
  Sender: FDA-Public Use
  Company Number: IE-BRISTOL-MYERS SQUIBB COMPANY-2022-101624

PATIENT
  Age: 70 Year
  Sex: Male
  Weight: 62.6 kg

DRUGS (12)
  1. DEXAMETHASONE [Suspect]
     Active Substance: DEXAMETHASONE
     Indication: Plasma cell myeloma
     Route: 048
     Dates: start: 20220324, end: 20220728
  2. POMALIDOMIDE [Suspect]
     Active Substance: POMALIDOMIDE
     Indication: Plasma cell myeloma
     Route: 048
     Dates: start: 20220324, end: 20220804
  3. CYCLOPHOSPHAMIDE [Suspect]
     Active Substance: CYCLOPHOSPHAMIDE
     Indication: Plasma cell myeloma
     Route: 048
     Dates: start: 20220324, end: 20220804
  4. DARATUMUMAB [Suspect]
     Active Substance: DARATUMUMAB
     Indication: Plasma cell myeloma
     Route: 058
     Dates: start: 20220324, end: 20220728
  5. BISOPROLOL [Concomitant]
     Active Substance: BISOPROLOL
     Indication: Hypertension
     Route: 048
     Dates: start: 20220830
  6. RAMIPRIL [Concomitant]
     Active Substance: RAMIPRIL
     Indication: Hypertension
     Route: 048
     Dates: start: 20220824
  7. SODIUM PHOSPHATE, MONOBASIC, ANHYDROUS [Concomitant]
     Active Substance: SODIUM PHOSPHATE, MONOBASIC, ANHYDROUS
     Indication: Hypophosphataemia
     Dosage: BD
     Route: 048
     Dates: start: 20220823, end: 20220913
  8. ASPIRIN [Concomitant]
     Active Substance: ASPIRIN
     Indication: Thrombosis prophylaxis
     Dosage: BD
     Route: 048
     Dates: start: 1990
  9. ASPIRIN [Concomitant]
     Active Substance: ASPIRIN
     Indication: Hypertension
  10. ENOXAPARIN SODIUM [Concomitant]
     Active Substance: ENOXAPARIN SODIUM
     Indication: Thrombosis prophylaxis
     Dosage: BD
     Route: 058
     Dates: start: 20220824, end: 20220912
  11. LANSOPRAZOLE [Concomitant]
     Active Substance: LANSOPRAZOLE
     Indication: Gastrooesophageal reflux disease
     Dosage: BD
     Route: 048
     Dates: start: 201804, end: 20220907
  12. MAGNESIUM VERLA [MAGNESIUM] [Concomitant]
     Indication: Hypomagnesaemia
     Route: 048
     Dates: start: 20220901, end: 20220912

REACTIONS (1)
  - Central nervous system lesion [Recovered/Resolved]

NARRATIVE: CASE EVENT DATE: 20220901
